FAERS Safety Report 20811142 (Version 5)
Quarter: 2022Q2

REPORT INFORMATION
  Report Type: Spontaneous
  Country: IT (occurrence: IT)
  Receive Date: 20220510
  Receipt Date: 20220523
  Transmission Date: 20220721
  Serious: Yes (Hospitalization, Other)
  Sender: FDA-Public Use
  Company Number: IT-NOVARTISPH-NVSC2022IT107541

PATIENT
  Age: 64 Year
  Sex: Female

DRUGS (6)
  1. LEVOFLOXACIN [Suspect]
     Active Substance: LEVOFLOXACIN
     Indication: Escherichia infection
     Dosage: UNK
     Route: 065
     Dates: start: 2021
  2. KETOROLAC [Suspect]
     Active Substance: KETOROLAC TROMETHAMINE
     Indication: Product used for unknown indication
     Dosage: 30 MILLIGRAM PER MILLILITRE
     Route: 051
     Dates: start: 2021
  3. CEFTRIAXONE [Suspect]
     Active Substance: CEFTRIAXONE
     Indication: Product used for unknown indication
     Dosage: 1 G/3.5ML
     Route: 051
     Dates: start: 2021
  4. CEFTRIAXONE [Suspect]
     Active Substance: CEFTRIAXONE
     Dosage: 1 G/3.5ML
     Route: 042
  5. CEFDITOREN [Suspect]
     Active Substance: CEFDITOREN
     Indication: Antibiotic therapy
     Dosage: 400 MG
     Route: 065
     Dates: start: 2021
  6. AMLODIPINE\RAMIPRIL [Concomitant]
     Active Substance: AMLODIPINE\RAMIPRIL
     Indication: Product used for unknown indication
     Dosage: UNK
     Route: 065

REACTIONS (9)
  - Hydronephrosis [Unknown]
  - Pyelonephritis [Unknown]
  - Hyperpyrexia [Unknown]
  - Back pain [Unknown]
  - Vulvovaginal discomfort [Unknown]
  - Cystocele [Unknown]
  - Escherichia infection [Unknown]
  - Drug ineffective [Unknown]
  - Polymerase chain reaction positive [Unknown]

NARRATIVE: CASE EVENT DATE: 20210926
